FAERS Safety Report 6126960-9 (Version None)
Quarter: 2009Q1

REPORT INFORMATION
  Report Type: 
  Country: None (occurrence: None)
  Receive Date: 20090320
  Receipt Date: 20090309
  Transmission Date: 20090719
  Serious: Yes (Hospitalization)
  Sender: FDA-Public Use
  Company Number: JP-ELI_LILLY_AND_COMPANY-JP200901001151

PATIENT
  Sex: Female
  Weight: 64.2 kg

DRUGS (15)
  1. DULOXETINE HYDROCHLORIDE [Suspect]
     Indication: DIABETIC NEUROPATHY
     Dosage: 20 MG, DAILY (1/D)
     Route: 048
     Dates: start: 20081105, end: 20081111
  2. DULOXETINE HYDROCHLORIDE [Suspect]
     Dosage: 40 MG, DAILY (1/D)
     Route: 048
     Dates: start: 20081112, end: 20081118
  3. DULOXETINE HYDROCHLORIDE [Suspect]
     Dosage: 60 MG, DAILY (1/D)
     Route: 048
     Dates: start: 20081119, end: 20081229
  4. NOVORAPID [Concomitant]
     Indication: DIABETES MELLITUS
     Dosage: 14 U, DAILY (1/D)
     Dates: start: 20080425, end: 20081215
  5. LANTUS [Concomitant]
     Indication: DIABETES MELLITUS
     Dosage: 14 U, DAILY (1/D)
     Dates: start: 20080701, end: 20081215
  6. DIOVAN [Concomitant]
     Indication: HYPERTENSION
     Dosage: 80 MG, DAILY (1/D)
     Route: 048
     Dates: start: 20070605, end: 20081215
  7. MYSLEE [Concomitant]
     Indication: INSOMNIA
     Dosage: 5 MG, DAILY (1/D)
     Route: 048
     Dates: start: 20080424, end: 20081214
  8. ASPIRIN [Concomitant]
     Indication: ANGINA PECTORIS
     Dosage: 100 MG, DAILY (1/D)
     Route: 048
     Dates: start: 20060616, end: 20081215
  9. ITOROL [Concomitant]
     Indication: ANGINA PECTORIS
     Dosage: 40 MG, DAILY (1/D)
     Route: 048
     Dates: start: 20060616, end: 20081215
  10. LIPITOR [Concomitant]
     Indication: DYSLIPIDAEMIA
     Dosage: 10 MG, DAILY (1/D)
     Route: 048
     Dates: start: 20060616, end: 20081214
  11. MAGLAX /JPN/ [Concomitant]
     Indication: CONSTIPATION
     Dosage: 1320 MG, DAILY (1/D)
     Route: 048
     Dates: start: 20081028, end: 20081215
  12. LAMISIL [Concomitant]
     Indication: ONYCHOMYCOSIS
     Dosage: 125 MG, DAILY (1/D)
     Route: 048
     Dates: start: 20081107, end: 20081215
  13. MYCOSPOR [Concomitant]
     Indication: ONYCHOMYCOSIS
     Dosage: UNK, AS NEEDED
     Route: 061
     Dates: start: 20081020, end: 20081215
  14. GLYMESASON [Concomitant]
     Indication: ONYCHOMYCOSIS
     Dosage: UNK, AS NEEDED
     Route: 061
     Dates: start: 20081107, end: 20081215
  15. CALONAL [Concomitant]
     Indication: DIABETIC NEUROPATHY
     Dosage: UNK, AS NEEDED
     Route: 048
     Dates: start: 20081118, end: 20081215

REACTIONS (4)
  - CLAVICLE FRACTURE [None]
  - LUNG INJURY [None]
  - PNEUMOTHORAX [None]
  - THORACIC VERTEBRAL FRACTURE [None]
